FAERS Safety Report 9239213 (Version 2)
Quarter: 2013Q2

REPORT INFORMATION
  Report Type: Spontaneous
  Country: FR (occurrence: FR)
  Receive Date: 20130418
  Receipt Date: 20130502
  Transmission Date: 20140414
  Serious: Yes (Other)
  Sender: FDA-Public Use
  Company Number: FR-ROCHE-1215639

PATIENT
  Age: 83 Year
  Sex: Female

DRUGS (5)
  1. MABTHERA [Suspect]
     Indication: VASCULITIS
     Route: 042
     Dates: start: 20130325
  2. MABTHERA [Suspect]
     Indication: CONGENITAL SYPHILITIC OSTEOCHONDRITIS
  3. PREVISCAN [Concomitant]
     Indication: ARRHYTHMIA
     Route: 048
     Dates: start: 20130402
  4. PREVISCAN [Concomitant]
     Indication: ATRIAL FIBRILLATION
  5. FUROSEMIDE [Concomitant]
     Indication: RENAL FAILURE
     Route: 048
     Dates: start: 20130410

REACTIONS (2)
  - Phlebitis [Not Recovered/Not Resolved]
  - Deep vein thrombosis [Not Recovered/Not Resolved]
